FAERS Safety Report 8041748-X (Version None)
Quarter: 2012Q1

REPORT INFORMATION
  Report Type: 
  Country: None (occurrence: None)
  Receive Date: 20120112
  Receipt Date: 20111129
  Transmission Date: 20120608
  Serious: No
  Sender: FDA-Public Use
  Company Number: PHEH2011US012967

PATIENT
  Sex: Female
  Weight: 186 kg

DRUGS (10)
  1. LORTAB [Concomitant]
     Dosage: 75 MG, QHS
     Route: 048
  2. GABAPENTIN [Concomitant]
     Dosage: 900 MG, PM
     Route: 048
  3. ASPIRIN [Concomitant]
     Dosage: 81 MG, DAILY
     Route: 048
  4. FERROUS SULFATE TAB [Concomitant]
     Dosage: 325 MG, DAILY
  5. PRILOSEC [Concomitant]
     Dosage: 20 MG, DAILY
     Route: 048
  6. TASIGNA [Suspect]
     Indication: CHRONIC MYELOID LEUKAEMIA
     Dosage: 150 MG, BID
     Route: 048
     Dates: start: 20111023, end: 20111026
  7. ALLOPURINOL [Concomitant]
     Dosage: 300 MG, DAILY
     Route: 048
  8. GABAPENTIN [Concomitant]
     Dosage: 1200 MG, AM
     Route: 048
  9. LASIX [Concomitant]
     Dosage: 80 MG, DAILY
     Route: 048
  10. VALSARTAN [Concomitant]
     Dosage: 450 MG, BID
     Route: 048

REACTIONS (1)
  - ABDOMINAL PAIN [None]
